FAERS Safety Report 5331750-0 (Version None)
Quarter: 2007Q2

REPORT INFORMATION
  Report Type: 
  Country: None (occurrence: None)
  Receive Date: 20070522
  Receipt Date: 20070511
  Transmission Date: 20071010
  Serious: Yes (Hospitalization, Other)
  Sender: FDA-Public Use
  Company Number: US-AMGEN-US224546

PATIENT
  Sex: Male
  Weight: 72.6 kg

DRUGS (3)
  1. PROCRIT [Suspect]
     Indication: ANAEMIA
     Route: 065
     Dates: start: 20051101, end: 20061201
  2. RIBAVIRIN [Concomitant]
     Route: 065
  3. INTERFERON [Concomitant]
     Route: 065

REACTIONS (2)
  - NEOPLASM [None]
  - NEPHRECTOMY [None]
